FAERS Safety Report 6635439-7 (Version None)
Quarter: 2010Q1

REPORT INFORMATION
  Report Type: 
  Country: None (occurrence: None)
  Receive Date: 20100315
  Receipt Date: 20090724
  Transmission Date: 20100710
  Serious: No
  Sender: FDA-Public Use
  Company Number: US-ABBOTT-09P-163-0587487-00

PATIENT
  Age: 83 Year
  Sex: Male

DRUGS (2)
  1. DEPAKOTE [Suspect]
     Indication: DRUG USE FOR UNKNOWN INDICATION
     Dosage: 1000MG PER DAY
  2. SEROQUEL [Concomitant]
     Indication: DEMENTIA ALZHEIMER'S TYPE

REACTIONS (3)
  - AGGRESSION [None]
  - AGITATION [None]
  - INSOMNIA [None]
